FAERS Safety Report 17139265 (Version 1)
Quarter: 2019Q4

REPORT INFORMATION
  Report Type: Spontaneous
  Country: RO (occurrence: RO)
  Receive Date: 20191211
  Receipt Date: 20191211
  Transmission Date: 20200122
  Serious: Yes (Other)
  Sender: FDA-Public Use
  Company Number: RO-B.I. PHARMACEUTICALS,INC./RIDGEFIELD-2019-BI-118146

PATIENT
  Age: 73 Year
  Sex: Female

DRUGS (5)
  1. NEXIUM [Concomitant]
     Active Substance: ESOMEPRAZOLE MAGNESIUM
     Indication: COUGH
     Dosage: 1 CP
     Route: 065
     Dates: start: 201810
  2. OFEV [Suspect]
     Active Substance: NINTEDANIB
     Route: 065
     Dates: start: 201901, end: 201903
  3. OFEV [Suspect]
     Active Substance: NINTEDANIB
     Route: 065
     Dates: start: 201906
  4. OFEV [Suspect]
     Active Substance: NINTEDANIB
     Indication: IDIOPATHIC PULMONARY FIBROSIS
     Route: 065
     Dates: start: 201810, end: 201812
  5. CODEINE [Concomitant]
     Active Substance: CODEINE
     Indication: COUGH
     Route: 065

REACTIONS (2)
  - Hepatocellular injury [Unknown]
  - Hepatocellular injury [Recovered/Resolved]

NARRATIVE: CASE EVENT DATE: 201812
